FAERS Safety Report 17973990 (Version 1)
Quarter: 2020Q3

REPORT INFORMATION
  Report Type: Spontaneous
  Country: US (occurrence: US)
  Receive Date: 20200702
  Receipt Date: 20200702
  Transmission Date: 20201103
  Serious: Yes (Other)
  Sender: FDA-Public Use
  Company Number: None

PATIENT
  Age: 65 Year
  Sex: Male
  Weight: 61 kg

DRUGS (1)
  1. VARENICLINE (VARENICLINE TAB STARTING MONTH PACK, 53) [Suspect]
     Active Substance: VARENICLINE
     Indication: SMOKING CESSATION THERAPY
     Dates: start: 20200309, end: 20200408

REACTIONS (4)
  - Nightmare [None]
  - Depression [None]
  - Hallucination [None]
  - Apathy [None]

NARRATIVE: CASE EVENT DATE: 20200404
